FAERS Safety Report 21962642 (Version 1)
Quarter: 2023Q1

REPORT INFORMATION
  Report Type: Spontaneous
  Country: US (occurrence: None)
  Receive Date: 20230206
  Receipt Date: 20230206
  Transmission Date: 20230417
  Serious: Yes (Hospitalization)
  Sender: FDA-Public Use
  Company Number: None

PATIENT
  Sex: Female

DRUGS (1)
  1. CAPECITABINE [Suspect]
     Active Substance: CAPECITABINE
     Indication: Colon cancer
     Dosage: FREQUENCY : TWICE A DAY;?
     Route: 048
     Dates: start: 20230105, end: 20230112

REACTIONS (10)
  - Diarrhoea [None]
  - Vision blurred [None]
  - Vomiting [None]
  - Fatigue [None]
  - Asthenia [None]
  - Bedridden [None]
  - Chest pain [None]
  - Myocardial infarction [None]
  - Renal failure [None]
  - Contrast media reaction [None]
